FAERS Safety Report 24744110 (Version 1)
Quarter: 2024Q4

REPORT INFORMATION
  Report Type: Spontaneous
  Country: GB (occurrence: GB)
  Receive Date: 20241217
  Receipt Date: 20241217
  Transmission Date: 20250114
  Serious: Yes (Other)
  Sender: ORGANON
  Company Number: None

PATIENT
  Age: 34 Year
  Sex: Female
  Weight: 80 kg

DRUGS (2)
  1. NEXPLANON [Suspect]
     Active Substance: ETONOGESTREL
     Dosage: FOR SUBDERMAL IMPLANT
     Route: 059
     Dates: start: 20220912, end: 20241211
  2. LIDOCAINE [Concomitant]
     Active Substance: LIDOCAINE
     Dosage: AS DIRECTED
     Dates: start: 20241211

REACTIONS (1)
  - Pregnancy [Unknown]

NARRATIVE: CASE EVENT DATE: 20241211
